FAERS Safety Report 10745724 (Version 2)
Quarter: 2015Q4

REPORT INFORMATION
  Report Type: Report from Study
  Country: AT (occurrence: AT)
  Receive Date: 20150128
  Receipt Date: 20151222
  Transmission Date: 20160304
  Serious: Yes (Hospitalization)
  Sender: FDA-Public Use
  Company Number: AT-ABBVIE-15P-009-1335334-00

PATIENT
  Age: 55 Year
  Sex: Female
  Weight: 64 kg

DRUGS (10)
  1. HUMIRA [Suspect]
     Active Substance: ADALIMUMAB
     Route: 058
  2. L-THYROXINE HENNING [Concomitant]
     Dosage: 100 MCG SATURDAY AND SUNDAY
     Dates: start: 20080405, end: 20081228
  3. L-THYROXINE HENNING [Concomitant]
     Dates: start: 201008
  4. HUMIRA [Suspect]
     Active Substance: ADALIMUMAB
     Indication: CROHN^S DISEASE
     Dosage: BASELINE
     Route: 058
     Dates: start: 20081001, end: 20081001
  5. CONCOR [Concomitant]
     Active Substance: BISOPROLOL FUMARATE
     Indication: TACHYCARDIA
     Dates: start: 20080904
  6. HUMIRA [Suspect]
     Active Substance: ADALIMUMAB
     Dosage: WEEK 2
     Route: 058
  7. L-THYROXINE HENNING [Concomitant]
     Dates: start: 20081229, end: 201008
  8. VALTREX [Concomitant]
     Active Substance: VALACYCLOVIR HYDROCHLORIDE
     Indication: ORAL HERPES
     Dates: start: 20090203, end: 20090901
  9. L-THYROXINE HENNING [Concomitant]
     Indication: HYPOTHYROIDISM
     Dosage: MONDAY, WEDNESDAY, FRIDAY
     Dates: start: 20080405, end: 20081228
  10. VALTREX [Concomitant]
     Active Substance: VALACYCLOVIR HYDROCHLORIDE
     Indication: PROPHYLAXIS

REACTIONS (1)
  - Anaemia [Recovered/Resolved]

NARRATIVE: CASE EVENT DATE: 20140514
